FAERS Safety Report 4693449-3 (Version None)
Quarter: 2005Q2

REPORT INFORMATION
  Report Type: 
  Country: None (occurrence: None)
  Receive Date: 20050615
  Receipt Date: 20050602
  Transmission Date: 20051028
  Serious: Yes (Death, Other)
  Sender: FDA-Public Use
  Company Number: USA-2005-0020229

PATIENT
  Age: 50 Year
  Sex: Male

DRUGS (1)
  1. OXYCONTIN [Suspect]
     Indication: PAIN
     Dosage: 40 MG, Q12H, ORAL
     Route: 048
     Dates: end: 20050510

REACTIONS (3)
  - ARTERIOSCLEROSIS [None]
  - CARDIAC DISORDER [None]
  - POLYSUBSTANCE ABUSE [None]
